FAERS Safety Report 15752958 (Version 1)
Quarter: 2018Q4

REPORT INFORMATION
  Report Type: Spontaneous
  Country: US (occurrence: US)
  Receive Date: 20181221
  Receipt Date: 20181221
  Transmission Date: 20190205
  Serious: Yes (Other)
  Sender: FDA-Public Use
  Company Number: US-JAZZ-JPI-P-031391

PATIENT
  Sex: Female

DRUGS (3)
  1. XYREM [Suspect]
     Active Substance: SODIUM OXYBATE
     Indication: NARCOLEPSY
     Dosage: 2.25 G, BID
     Route: 048
     Dates: start: 20060309
  2. XYREM [Suspect]
     Active Substance: SODIUM OXYBATE
     Dosage: UNKNOWN, SINGLE
     Route: 048
  3. XYREM [Suspect]
     Active Substance: SODIUM OXYBATE
     Dosage: 6 G, BID
     Route: 048
     Dates: start: 20110323

REACTIONS (12)
  - Hypersomnia [Unknown]
  - Spinal operation [Unknown]
  - Panic attack [Unknown]
  - Anxiety [Unknown]
  - Musculoskeletal discomfort [Not Recovered/Not Resolved]
  - Eye injury [Unknown]
  - Victim of spousal abuse [Unknown]
  - Face injury [Unknown]
  - Feeling abnormal [Unknown]
  - Back disorder [Not Recovered/Not Resolved]
  - Victim of crime [Unknown]
  - Stress [Unknown]
